FAERS Safety Report 7672268-X (Version None)
Quarter: 2011Q3

REPORT INFORMATION
  Report Type: 
  Country: None (occurrence: None)
  Receive Date: 20110804
  Receipt Date: 20110726
  Transmission Date: 20111222
  Serious: Yes (Hospitalization)
  Sender: FDA-Public Use
  Company Number: 994100

PATIENT
  Age: 30 Year
  Sex: Female
  Weight: 50 kg

DRUGS (7)
  1. (OXYGEN) [Concomitant]
  2. PROPOFOL [Suspect]
     Indication: ANAESTHESIA PROCEDURE
     Dosage: 120 MG, INTRAVENOUS BOLUS, 50 MG INTRAVENOUS (NOT OTHERWISE SPECIFIED)
     Route: 040
  3. PROPOFOL [Suspect]
     Indication: INDUCTION OF ANAESTHESIA
     Dosage: 120 MG, INTRAVENOUS BOLUS, 50 MG INTRAVENOUS (NOT OTHERWISE SPECIFIED)
     Route: 040
  4. MIDAZOLAM HCL [Concomitant]
  5. FENTANYL CITRATE [Concomitant]
  6. DESFLURANE [Suspect]
     Indication: MAINTENANCE OF ANAESTHESIA
     Dosage: RESPIRATORY (INHALATION)
     Route: 055
  7. (ROCURNNINM BROMIDE) [Suspect]
     Indication: NEUROMUSCULAR BLOCKADE
     Dosage: 15 MG INTRAVENOUS (NOT OTHERWISE SPECIFIED)
     Route: 042

REACTIONS (2)
  - POTENTIATING DRUG INTERACTION [None]
  - NEUROMUSCULAR BLOCK PROLONGED [None]
